FAERS Safety Report 11783941 (Version 2)
Quarter: 2016Q1

REPORT INFORMATION
  Report Type: Spontaneous
  Country: IT (occurrence: IT)
  Receive Date: 20151128
  Receipt Date: 20160115
  Transmission Date: 20160525
  Serious: Yes (Hospitalization)
  Sender: FDA-Public Use
  Company Number: IT-SUN PHARMACEUTICAL INDUSTRIES LTD-2015RR-106635

PATIENT

DRUGS (4)
  1. VALIUM [Suspect]
     Active Substance: DIAZEPAM
     Indication: DRUG ABUSE
     Dosage: 20 ML, SINGLE
     Route: 048
     Dates: start: 20150907, end: 20150907
  2. LANSOPRAZOLE. [Suspect]
     Active Substance: LANSOPRAZOLE
     Indication: DRUG ABUSE
     Dosage: UNK
     Route: 048
     Dates: start: 20150907, end: 20150907
  3. BISOPROLOL [Suspect]
     Active Substance: BISOPROLOL
     Indication: DRUG ABUSE
     Dosage: 105 MG, SINGLE
     Route: 048
     Dates: start: 20150907, end: 20150907
  4. DELTACORTENE [Suspect]
     Active Substance: PREDNISONE
     Indication: DRUG ABUSE
     Dosage: 10 DF, SINGLE
     Route: 048

REACTIONS (4)
  - Electrocardiogram ST segment abnormal [Recovered/Resolved]
  - Drug abuse [Recovered/Resolved]
  - Intentional self-injury [Recovered/Resolved]
  - Sopor [Recovered/Resolved]

NARRATIVE: CASE EVENT DATE: 20150907
